FAERS Safety Report 8107278-1 (Version None)
Quarter: 2012Q1

REPORT INFORMATION
  Report Type: 
  Country: None (occurrence: None)
  Receive Date: 20120202
  Receipt Date: 20120126
  Transmission Date: 20120608
  Serious: Yes (Other)
  Sender: FDA-Public Use
  Company Number: US-PFIZER INC-2012023145

PATIENT
  Sex: Male

DRUGS (1)
  1. DILANTIN [Suspect]
     Dosage: 100 MG, 4X/DAY (100 MG 1 CAP PO QID)
     Route: 048

REACTIONS (2)
  - RETINITIS PIGMENTOSA [None]
  - BLINDNESS [None]
